FAERS Safety Report 4293820-8 (Version None)
Quarter: 2004Q1

REPORT INFORMATION
  Report Type: 
  Country: None (occurrence: None)
  Receive Date: 20040210
  Receipt Date: 20040128
  Transmission Date: 20041129
  Serious: Yes (Disabling)
  Sender: FDA-Public Use
  Company Number: 2003122950

PATIENT
  Age: 37 Year
  Sex: Female
  Weight: 87 kg

DRUGS (3)
  1. ZELDOX (CAPSULES) (ZIPRASIDONE) [Suspect]
     Indication: PSYCHOTIC DISORDER
     Dosage: 160 MG BID, ORAL
     Route: 048
     Dates: start: 20030513, end: 20031106
  2. ORPHENADRINE HYDROCHLORIDE (ORPHENADRINE HYDROCHLORIDE) [Concomitant]
  3. CLOMIPRAMINE HCL [Concomitant]

REACTIONS (6)
  - AGITATION [None]
  - ANXIETY [None]
  - BRUXISM [None]
  - DYSKINESIA [None]
  - DYSPHORIA [None]
  - EXTRAPYRAMIDAL DISORDER [None]
